APPROVED DRUG PRODUCT: ADENOSINE
Active Ingredient: ADENOSINE
Strength: 3MG/ML
Dosage Form/Route: INJECTABLE;INJECTION
Application: A078076 | Product #001 | TE Code: AP
Applicant: RISING PHARMA HOLDINGS INC
Approved: Oct 31, 2008 | RLD: No | RS: Yes | Type: RX